FAERS Safety Report 19972404 (Version 4)
Quarter: 2022Q1

REPORT INFORMATION
  Report Type: Report from Study
  Country: NL (occurrence: NL)
  Receive Date: 20211020
  Receipt Date: 20220302
  Transmission Date: 20220423
  Serious: Yes (Other)
  Sender: FDA-Public Use
  Company Number: NL-ABBVIE-21K-114-4125451-00

PATIENT
  Age: 69 Year
  Sex: Male

DRUGS (4)
  1. CARBIDOPA\LEVODOPA [Suspect]
     Active Substance: CARBIDOPA\LEVODOPA
     Indication: Product used for unknown indication
     Dosage: MD: 6.5 ML, CD: 2.9 ML/H, ED: 2 ML
     Route: 050
  2. CARBIDOPA\LEVODOPA [Suspect]
     Active Substance: CARBIDOPA\LEVODOPA
     Dosage: MD: 6.0ML, CD: 2.6ML/H, ED: 2.0ML
     Route: 050
  3. CARBIDOPA\LEVODOPA [Suspect]
     Active Substance: CARBIDOPA\LEVODOPA
     Dosage: CD INCREASED BY 0.3 ML/H
     Route: 050
  4. CARBIDOPA\LEVODOPA [Suspect]
     Active Substance: CARBIDOPA\LEVODOPA
     Dosage: MD 6.0 ML CD 2.8 ML/H ED 2.0 ML
     Route: 050

REACTIONS (20)
  - Transurethral prostatectomy [Recovered/Resolved]
  - Illness [Not Recovered/Not Resolved]
  - Urinary tract infection [Not Recovered/Not Resolved]
  - Cystitis noninfective [Unknown]
  - Musculoskeletal stiffness [Not Recovered/Not Resolved]
  - Muscle rigidity [Unknown]
  - Parkinson^s disease [Unknown]
  - Fall [Unknown]
  - Hyperkinesia [Unknown]
  - Dyskinesia [Not Recovered/Not Resolved]
  - Movement disorder [Not Recovered/Not Resolved]
  - Fluid intake reduced [Not Recovered/Not Resolved]
  - Bowel movement irregularity [Not Recovered/Not Resolved]
  - Therapeutic product effect incomplete [Not Recovered/Not Resolved]
  - Bradykinesia [Not Recovered/Not Resolved]
  - Speech disorder [Not Recovered/Not Resolved]
  - Laboratory test abnormal [Unknown]
  - Stoma site erythema [Unknown]
  - Medical device site dryness [Unknown]
  - Polyneuropathy [Unknown]

NARRATIVE: CASE EVENT DATE: 20210101
